FAERS Safety Report 4682106-5 (Version None)
Quarter: 2005Q2

REPORT INFORMATION
  Report Type: 
  Country: None (occurrence: None)
  Receive Date: 20050603
  Receipt Date: 20050603
  Transmission Date: 20051028
  Serious: Yes (Other)
  Sender: FDA-Public Use
  Company Number: None

PATIENT
  Age: 55 Year
  Sex: Male
  Weight: 76.2043 kg

DRUGS (8)
  1. MEPRON [Suspect]
     Indication: PROPHYLAXIS
     Dosage: 10CC   DAY   ORAL
     Route: 048
     Dates: start: 20050511, end: 20050602
  2. CELLCEPT [Concomitant]
  3. NEORAL [Concomitant]
  4. PREDNISONE TAB [Concomitant]
  5. IRON SULFATETHIAMIN COMPOUND TAB [Concomitant]
  6. CALCIUM GLUCONATE [Concomitant]
  7. MULTIPLE VITAMIN [Concomitant]
  8. VALCYTE [Concomitant]

REACTIONS (1)
  - XANTHOPSIA [None]
